FAERS Safety Report 7724837-6 (Version None)
Quarter: 2011Q3

REPORT INFORMATION
  Report Type: 
  Country: None (occurrence: None)
  Receive Date: 20110901
  Receipt Date: 20110620
  Transmission Date: 20111222
  Serious: Yes (Other)
  Sender: FDA-Public Use
  Company Number: NL-BAYER-2011-046529

PATIENT
  Sex: Female

DRUGS (1)
  1. MIRENA [Suspect]
     Indication: PRODUCT USED FOR UNKNOWN INDICATION
     Dosage: 20 MCG/24HR, CONT
     Route: 015
     Dates: start: 20110411, end: 20110601

REACTIONS (23)
  - BONE PAIN [None]
  - VISUAL ACUITY REDUCED [None]
  - NAUSEA [None]
  - SYNCOPE [None]
  - SWOLLEN TONGUE [None]
  - DEPRESSED LEVEL OF CONSCIOUSNESS [None]
  - NIPPLE PAIN [None]
  - SWELLING [None]
  - EYE PAIN [None]
  - DEPRESSION [None]
  - ALLERGY TO CHEMICALS [None]
  - FLUID RETENTION [None]
  - FATIGUE [None]
  - DRY SKIN [None]
  - UNEVALUABLE EVENT [None]
  - BACK PAIN [None]
  - ACNE [None]
  - PRURITUS [None]
  - ABDOMINAL PAIN LOWER [None]
  - NASAL CONGESTION [None]
  - ASTHENIA [None]
  - CHILLS [None]
  - PERIPHERAL COLDNESS [None]
